FAERS Safety Report 6770415-5 (Version None)
Quarter: 2010Q2

REPORT INFORMATION
  Report Type: 
  Country: None (occurrence: None)
  Receive Date: 20100615
  Receipt Date: 20100603
  Transmission Date: 20101027
  Serious: Yes (Other)
  Sender: FDA-Public Use
  Company Number: US-PFIZER INC-2010070281

PATIENT
  Sex: Female
  Weight: 81 kg

DRUGS (9)
  1. CHANTIX [Suspect]
     Indication: SMOKING CESSATION THERAPY
     Dosage: UNK
     Route: 048
     Dates: start: 20100101, end: 20100501
  2. CELEXA [Concomitant]
     Indication: DEPRESSION
     Dosage: 40 MG, 1X/DAY
     Route: 048
  3. CELEXA [Concomitant]
     Dosage: 60 MG, 1X/DAY
  4. KLONOPIN [Concomitant]
     Indication: ANXIETY
     Dosage: 0.5 MG, 1X/DAY
     Route: 048
  5. KLONOPIN [Concomitant]
     Dosage: 0.5 MG, 2X/DAY
  6. ULTRAM [Concomitant]
     Indication: MUSCULOSKELETAL DISCOMFORT
     Dosage: 0.5 MG, 4X/DAY
     Route: 048
  7. ULTRAM [Concomitant]
     Indication: BACK DISORDER
  8. CYCLOBENZAPRINE HYDROCHLORIDE [Concomitant]
     Indication: MUSCLE SPASMS
     Dosage: 10 MG, 3X/DAY
     Route: 048
  9. NEURONTIN [Concomitant]
     Indication: NEUROPATHY PERIPHERAL
     Dosage: 900 MG, 4X/DAY
     Route: 048

REACTIONS (2)
  - CONFUSIONAL STATE [None]
  - WEIGHT INCREASED [None]
